FAERS Safety Report 20082302 (Version 2)
Quarter: 2024Q3

REPORT INFORMATION
  Report Type: Spontaneous
  Country: ES (occurrence: ES)
  Receive Date: 20211117
  Receipt Date: 20240712
  Transmission Date: 20241017
  Serious: Yes (Other)
  Sender: PFIZER
  Company Number: ES-SEATTLE GENETICS-2021SGN05505

PATIENT
  Sex: Female

DRUGS (3)
  1. TRASTUZUMAB [Suspect]
     Active Substance: TRASTUZUMAB
     Indication: Breast cancer metastatic
     Dosage: UNK
  2. CAPECITABINE [Suspect]
     Active Substance: CAPECITABINE
     Indication: HER2 positive breast cancer
  3. TUKYSA [Suspect]
     Active Substance: TUCATINIB
     Indication: HER2 negative breast cancer
     Dosage: 300 MG, BID

REACTIONS (4)
  - Metastases to central nervous system [Unknown]
  - Palmar-plantar erythrodysaesthesia syndrome [Unknown]
  - Nausea [Unknown]
  - Diarrhoea [Unknown]
